FAERS Safety Report 9417951 (Version 1)
Quarter: 2013Q3

REPORT INFORMATION
  Report Type: Spontaneous
  Country: US (occurrence: US)
  Receive Date: 20130724
  Receipt Date: 20130724
  Transmission Date: 20140515
  Serious: No
  Sender: FDA-Public Use
  Company Number: US-BAUSCH-BL-2012-001173

PATIENT
  Sex: Male
  Weight: 81.72 kg

DRUGS (1)
  1. OPCON-A [Suspect]
     Dosage: 2-3 TIMES DAILY
     Route: 047
     Dates: start: 20120826, end: 20120925

REACTIONS (2)
  - Headache [Unknown]
  - Eye irritation [Unknown]
